FAERS Safety Report 4555434-1 (Version None)
Quarter: 2005Q1

REPORT INFORMATION
  Report Type: 
  Country: None (occurrence: None)
  Receive Date: 20050118
  Receipt Date: 20050118
  Transmission Date: 20050727
  Serious: No
  Sender: FDA-Public Use
  Company Number: None

PATIENT
  Age: 52 Year
  Sex: Male
  Weight: 99.7913 kg

DRUGS (1)
  1. CIALIS [Suspect]
     Indication: ORGANIC ERECTILE DYSFUNCTION
     Dosage: ONE TABLET  AS NEEDED ORAL
     Route: 048
     Dates: start: 20040317, end: 20040318

REACTIONS (1)
  - EPISTAXIS [None]
